FAERS Safety Report 7984281-3 (Version None)
Quarter: 2011Q4

REPORT INFORMATION
  Report Type: 
  Country: None (occurrence: None)
  Receive Date: 20111214
  Receipt Date: 20101206
  Transmission Date: 20120403
  Serious: Yes (Other)
  Sender: FDA-Public Use
  Company Number: GER/USA/10/0016883

PATIENT
  Age: 26 Year
  Sex: Male

DRUGS (2)
  1. CITALOPRAM HYDROBROMIDE [Suspect]
     Indication: DEPRESSION
     Dosage: 20 MG, 1 IN 1 D, ORAL ; 40 MG, 1 IN 1 D, ORAL
     Route: 048
  2. HYDROCODONE (PARACETAMOL) (VICODIN) [Concomitant]

REACTIONS (7)
  - TARDIVE DYSKINESIA [None]
  - AKATHISIA [None]
  - DEPRESSION [None]
  - HYPERTONIA [None]
  - EXTRAPYRAMIDAL DISORDER [None]
  - GRIMACING [None]
  - SUICIDAL IDEATION [None]
